FAERS Safety Report 5399918-5 (Version None)
Quarter: 2007Q3

REPORT INFORMATION
  Report Type: 
  Country: None (occurrence: None)
  Receive Date: 20070724
  Receipt Date: 20070711
  Transmission Date: 20080115
  Serious: Yes (Death)
  Sender: FDA-Public Use
  Company Number: 070717-0000683

PATIENT
  Age: 82 Year
  Sex: Female

DRUGS (2)
  1. DACTINOMYCIN [Suspect]
     Indication: MALIGNANT MELANOMA
  2. MELPHALAN (MELPHALAN) [Suspect]
     Indication: DRUG USE FOR UNKNOWN INDICATION

REACTIONS (2)
  - DRUG TOXICITY [None]
  - MULTI-ORGAN FAILURE [None]
